FAERS Safety Report 23958508 (Version 1)
Quarter: 2024Q2

REPORT INFORMATION
  Report Type: Spontaneous
  Country: US (occurrence: US)
  Receive Date: 20240610
  Receipt Date: 20240610
  Transmission Date: 20240716
  Serious: No
  Sender: FDA-Public Use
  Company Number: US-009507513-2406USA000359

PATIENT
  Age: 65 Year
  Sex: Female

DRUGS (2)
  1. KEYTRUDA [Suspect]
     Active Substance: PEMBROLIZUMAB
     Indication: Non-small cell lung cancer
     Dosage: IV INFUSION EVERY 3 WEEKS
     Route: 042
     Dates: start: 202302
  2. DEXAMETHASONE [Concomitant]
     Active Substance: DEXAMETHASONE

REACTIONS (7)
  - Oropharyngeal pain [Unknown]
  - Stomatitis [Unknown]
  - Fatigue [Unknown]
  - Poor quality sleep [Unknown]
  - Dysphagia [Unknown]
  - Dysgeusia [Unknown]
  - Cortisol abnormal [Unknown]

NARRATIVE: CASE EVENT DATE: 20231101
